FAERS Safety Report 14650168 (Version 1)
Quarter: 2018Q1

REPORT INFORMATION
  Report Type: Spontaneous
  Country: JP (occurrence: JP)
  Receive Date: 20180316
  Receipt Date: 20180316
  Transmission Date: 20180509
  Serious: Yes (Hospitalization, Other)
  Sender: FDA-Public Use
  Company Number: JP-GILEAD-2018-0317642

PATIENT
  Age: 65 Year
  Sex: Male

DRUGS (2)
  1. VEMLIDY [Suspect]
     Active Substance: TENOFOVIR ALAFENAMIDE FUMARATE
     Indication: CHRONIC HEPATITIS B
     Dosage: 25 MG, QD
     Route: 048
     Dates: start: 201710, end: 20180119
  2. VEMLIDY [Suspect]
     Active Substance: TENOFOVIR ALAFENAMIDE FUMARATE
     Dosage: 25 MG, QD
     Route: 050
     Dates: start: 20180120

REACTIONS (5)
  - Dysphagia [Unknown]
  - Incorrect route of drug administration [Not Recovered/Not Resolved]
  - Product use complaint [Not Recovered/Not Resolved]
  - Haematological malignancy [Unknown]
  - Wrong technique in product usage process [Not Recovered/Not Resolved]
